FAERS Safety Report 15261830 (Version 1)
Quarter: 2018Q3

REPORT INFORMATION
  Report Type: Spontaneous
  Country: US (occurrence: US)
  Receive Date: 20180809
  Receipt Date: 20180809
  Transmission Date: 20181010
  Serious: Yes (Death, Hospitalization)
  Sender: FDA-Public Use
  Company Number: US-TEVA-2018-US-938935

PATIENT
  Age: 58 Year
  Sex: Male

DRUGS (2)
  1. PROPOFOL. [Suspect]
     Active Substance: PROPOFOL
     Route: 040
  2. PROPOFOL. [Suspect]
     Active Substance: PROPOFOL
     Route: 041

REACTIONS (1)
  - Propofol infusion syndrome [Fatal]
